FAERS Safety Report 8757254 (Version 1)
Quarter: 2012Q4

REPORT INFORMATION
  Report Type: 
  Country: DE (occurrence: DE)
  Receive Date: 20120828
  Receipt Date: 20120828
  Transmission Date: 20130627
  Serious: Yes (Other)
  Sender: FDA-Public Use
  Company Number: DE-GENZYME-POMP-1001753

PATIENT
  Sex: Female

DRUGS (4)
  1. MYOZYME [Suspect]
     Indication: GLYCOGEN STORAGE DISEASE TYPE II
     Dosage: UNK
     Route: 042
  2. BORTEZOMIB [Concomitant]
     Indication: IMMUNOSUPPRESSION
     Dosage: 0.58 mg, UNK
     Route: 042
     Dates: start: 20110321
  3. BORTEZOMIB [Concomitant]
     Dosage: 0.58 mg, UNK
     Dates: start: 20110419
  4. BORTEZOMIB [Concomitant]
     Dosage: 0.58 mg, UNK
     Route: 042
     Dates: start: 20110530

REACTIONS (4)
  - Anaphylactoid reaction [Unknown]
  - Respiratory failure [Unknown]
  - General physical health deterioration [Unknown]
  - Infusion related reaction [Unknown]
